FAERS Safety Report 25039511 (Version 1)
Quarter: 2025Q1

REPORT INFORMATION
  Report Type: Spontaneous
  Country: US (occurrence: US)
  Receive Date: 20250305
  Receipt Date: 20250305
  Transmission Date: 20250408
  Serious: No
  Sender: TARO
  Company Number: US-TARO PHARMACEUTICALS USA INC.-2024TAR02399

PATIENT

DRUGS (1)
  1. MICONAZOLE [Suspect]
     Active Substance: MICONAZOLE
     Indication: Product used for unknown indication
     Route: 065

REACTIONS (1)
  - Condition aggravated [Not Recovered/Not Resolved]
